FAERS Safety Report 4665997-3 (Version None)
Quarter: 2005Q2

REPORT INFORMATION
  Report Type: 
  Country: None (occurrence: None)
  Receive Date: 20050517
  Receipt Date: 20050203
  Transmission Date: 20051028
  Serious: Yes (Hospitalization)
  Sender: FDA-Public Use
  Company Number: S05-USA-00641-01

PATIENT
  Age: 80 Year
  Sex: Male

DRUGS (7)
  1. NAMENDA [Suspect]
     Indication: DEMENTIA
     Dosage: 15 MG QD PO
     Route: 048
     Dates: start: 20050118, end: 20050124
  2. NAMENDA [Suspect]
     Indication: DEMENTIA
     Dosage: 5 MG QD PO
     Route: 048
     Dates: start: 20050104, end: 20050110
  3. NAMENDA [Suspect]
     Indication: DEMENTIA
     Dosage: 5 MG BID PO
     Route: 048
     Dates: start: 20050111, end: 20050117
  4. CARBIDOPA AND LEVODOPA [Concomitant]
  5. NEURONTIN [Concomitant]
  6. AMANTADINE [Concomitant]
  7. ARICEPT [Concomitant]

REACTIONS (7)
  - CONFUSIONAL STATE [None]
  - DEHYDRATION [None]
  - GAIT DISTURBANCE [None]
  - HALLUCINATION, VISUAL [None]
  - INSOMNIA [None]
  - MUSCLE SPASMS [None]
  - MUSCLE STRAIN [None]
